FAERS Safety Report 7312648-5 (Version None)
Quarter: 2011Q1

REPORT INFORMATION
  Report Type: 
  Country: None (occurrence: None)
  Receive Date: 20110224
  Receipt Date: 20110113
  Transmission Date: 20110831
  Serious: No
  Sender: FDA-Public Use
  Company Number: US-MYLANLABS-2010S1021523

PATIENT
  Age: 85 Year
  Sex: Female

DRUGS (4)
  1. CAPTOPRIL [Concomitant]
  2. GABAPENTIN [Concomitant]
     Indication: CARPAL TUNNEL SYNDROME
  3. LANSOPRAZOLE [Suspect]
     Indication: GASTROOESOPHAGEAL REFLUX DISEASE
     Route: 048
     Dates: start: 20101101, end: 20101101
  4. ATENOLOL [Concomitant]
     Indication: BLOOD PRESSURE INCREASED

REACTIONS (5)
  - DYSURIA [None]
  - CONTRACTED BLADDER [None]
  - EXTRASYSTOLES [None]
  - URINARY RETENTION [None]
  - PALPITATIONS [None]
